FAERS Safety Report 9270045 (Version 2)
Quarter: 2013Q2

REPORT INFORMATION
  Report Type: Spontaneous
  Country: JP (occurrence: JP)
  Receive Date: 20130503
  Receipt Date: 20130510
  Transmission Date: 20140414
  Serious: Yes (Hospitalization)
  Sender: FDA-Public Use
  Company Number: JP-ABBOTT-13X-087-1082422-00

PATIENT
  Age: 69 Year
  Sex: Female

DRUGS (3)
  1. CLARITH [Suspect]
     Indication: PNEUMONIA ASPIRATION
     Route: 048
     Dates: start: 20130220, end: 20130225
  2. TAMIFLU [Suspect]
     Indication: ANTIVIRAL PROPHYLAXIS
     Route: 048
     Dates: start: 20130221, end: 20130225
  3. ROCEPHIN [Suspect]
     Indication: PNEUMONIA ASPIRATION
     Route: 042
     Dates: start: 20130220

REACTIONS (1)
  - Enterocolitis haemorrhagic [Recovering/Resolving]
